FAERS Safety Report 21682635 (Version 10)
Quarter: 2024Q4

REPORT INFORMATION
  Report Type: Spontaneous
  Country: US (occurrence: US)
  Receive Date: 20221205
  Receipt Date: 20241227
  Transmission Date: 20250115
  Serious: No
  Sender: PFIZER
  Company Number: US-PFIZER INC-PV202200115670

PATIENT
  Age: 77 Year
  Sex: Male

DRUGS (2)
  1. CIBINQO [Suspect]
     Active Substance: ABROCITINIB
     Indication: Dermatitis atopic
     Dosage: 100 MG, DAILY
     Route: 048
  2. CIBINQO [Suspect]
     Active Substance: ABROCITINIB
     Indication: Rash

REACTIONS (7)
  - Therapeutic product effect incomplete [Unknown]
  - Condition aggravated [Unknown]
  - Hypoacusis [Unknown]
  - Frustration tolerance decreased [Unknown]
  - Skin lesion [Not Recovered/Not Resolved]
  - Lentigo [Unknown]
  - Memory impairment [Unknown]
